FAERS Safety Report 16134757 (Version 1)
Quarter: 2019Q1

REPORT INFORMATION
  Report Type: Spontaneous
  Country: IE (occurrence: IE)
  Receive Date: 20190329
  Receipt Date: 20190329
  Transmission Date: 20190418
  Serious: Yes (Hospitalization)
  Sender: FDA-Public Use
  Company Number: IE-JNJFOC-20190334245

PATIENT
  Age: 50 Year
  Sex: Female
  Weight: 93.3 kg

DRUGS (3)
  1. REMICADE [Suspect]
     Active Substance: INFLIXIMAB
     Indication: CROHN^S DISEASE
     Dosage: SUSPECTED REACTION REOCCURRED
     Route: 042
     Dates: start: 2006
  2. REMICADE [Suspect]
     Active Substance: INFLIXIMAB
     Indication: CROHN^S DISEASE
     Dosage: FIRST DOSE SINCE 2006. NIL REACTION TO SAME
     Route: 042
     Dates: start: 20190124
  3. REMICADE [Suspect]
     Active Substance: INFLIXIMAB
     Indication: CROHN^S DISEASE
     Dosage: SECOND DOSE OF CURRENT REGIMEN. REACTION OCCURRED DURING THIS DOSE.
     Route: 042
     Dates: start: 20190211

REACTIONS (11)
  - Rash erythematous [Recovered/Resolved]
  - Hypoaesthesia [Recovered/Resolved]
  - Conversion disorder [Recovered/Resolved]
  - Nausea [Recovered/Resolved]
  - Flushing [Recovered/Resolved]
  - Infusion related reaction [Recovered/Resolved]
  - Rash [Recovered/Resolved]
  - Dyspnoea [Recovered/Resolved]
  - Peripheral swelling [Recovered/Resolved]
  - Condition aggravated [Recovered/Resolved]
  - Sinusitis [Recovered/Resolved]

NARRATIVE: CASE EVENT DATE: 20190211
